FAERS Safety Report 5864041-X (Version None)
Quarter: 2008Q3

REPORT INFORMATION
  Report Type: 
  Country: None (occurrence: None)
  Receive Date: 20080829
  Receipt Date: 20080820
  Transmission Date: 20090109
  Serious: Yes (Hospitalization, Other)
  Sender: FDA-Public Use
  Company Number: PHHO2008US09615

PATIENT
  Sex: Female
  Weight: 54.5 kg

DRUGS (7)
  1. BLINDED ACLASTA/ZOLEDRONATE T29581+A++OS [Suspect]
     Indication: OSTEOPOROSIS
     Dosage: DOUBLE BLIND
     Route: 042
     Dates: start: 20080617
  2. BLINDED NO TREATMENT RECEIVED NOMED [Suspect]
     Indication: OSTEOPOROSIS
     Dosage: DOUBLE BLIND
     Route: 042
     Dates: start: 20080617
  3. BLINDED PLACEBO COMP-PLA+ [Suspect]
     Indication: OSTEOPOROSIS
     Dosage: DOUBLE BLIND
     Route: 042
     Dates: start: 20080617
  4. DILANTIN [Suspect]
     Indication: CONVULSION
  5. KLONOPIN [Suspect]
  6. CALCIUM [Concomitant]
  7. VITAMIN D3 [Concomitant]

REACTIONS (15)
  - ABNORMAL BEHAVIOUR [None]
  - AMMONIA INCREASED [None]
  - BLOOD ALKALINE PHOSPHATASE INCREASED [None]
  - BLOOD CALCIUM DECREASED [None]
  - BLOOD POTASSIUM DECREASED [None]
  - BLOOD SODIUM DECREASED [None]
  - CEREBRAL DISORDER [None]
  - CONFUSIONAL STATE [None]
  - CONVULSION [None]
  - DIARRHOEA [None]
  - DRUG EFFECT DECREASED [None]
  - DYSARTHRIA [None]
  - ELECTROENCEPHALOGRAM ABNORMAL [None]
  - MENTAL STATUS CHANGES [None]
  - MUSCLE TWITCHING [None]
